FAERS Safety Report 7582820-8 (Version None)
Quarter: 2011Q2

REPORT INFORMATION
  Report Type: 
  Country: None (occurrence: None)
  Receive Date: 20110630
  Receipt Date: 20110616
  Transmission Date: 20111010
  Serious: Yes (Life-Threatening, Hospitalization, Other)
  Sender: FDA-Public Use
  Company Number: GB-MYLANLABS-2011S1012480

PATIENT
  Age: 47 Year
  Sex: Male
  Weight: 91 kg

DRUGS (7)
  1. PROPRANOLOL [Suspect]
     Indication: PRODUCT USED FOR UNKNOWN INDICATION
     Route: 048
     Dates: start: 20051214, end: 20060126
  2. MS CONTIN [Concomitant]
     Indication: ABDOMINAL PAIN UPPER
     Dates: start: 20030101
  3. PROZAC [Concomitant]
     Indication: DEPRESSION
     Dates: start: 20050101
  4. ZOPICLONE [Concomitant]
     Indication: INSOMNIA
     Dates: start: 20050101
  5. ORAMORPH SR [Concomitant]
     Indication: ABDOMINAL PAIN UPPER
     Dates: start: 20030101
  6. SUNITINIB MALATE [Suspect]
     Indication: PRODUCT USED FOR UNKNOWN INDICATION
     Route: 048
     Dates: start: 20060113, end: 20060125
  7. GABAPENTIN [Concomitant]
     Indication: PRODUCT USED FOR UNKNOWN INDICATION
     Dates: start: 20051214

REACTIONS (10)
  - VENTRICULAR TACHYCARDIA [None]
  - CARDIAC ARREST [None]
  - VOMITING [None]
  - THROMBOCYTOPENIA [None]
  - HYPOKALAEMIA [None]
  - ABDOMINAL PAIN UPPER [None]
  - DIARRHOEA [None]
  - TORSADE DE POINTES [None]
  - CONVULSION [None]
  - HEPATIC ENZYME INCREASED [None]
